FAERS Safety Report 20636637 (Version 2)
Quarter: 2022Q2

REPORT INFORMATION
  Report Type: Report from Study
  Country: US (occurrence: US)
  Receive Date: 20220325
  Receipt Date: 20220502
  Transmission Date: 20220721
  Serious: No
  Sender: FDA-Public Use
  Company Number: US-BIOVITRUM-2022US03863

PATIENT
  Sex: Male

DRUGS (1)
  1. DOPTELET [Suspect]
     Active Substance: AVATROMBOPAG MALEATE
     Indication: Thrombocytopenia
     Route: 048
     Dates: start: 20220310

REACTIONS (4)
  - Stress [Unknown]
  - Pancreatic cyst [Recovered/Resolved]
  - Abdominal pain upper [Unknown]
  - Headache [Unknown]
